FAERS Safety Report 23368013 (Version 4)
Quarter: 2024Q1

REPORT INFORMATION
  Report Type: Spontaneous
  Country: ES (occurrence: ES)
  Receive Date: 20240105
  Receipt Date: 20240327
  Transmission Date: 20240410
  Serious: Yes (Other)
  Sender: FDA-Public Use
  Company Number: ES-GLAXOSMITHKLINE-ESCH2019000310

PATIENT
  Age: 41 Year
  Sex: Male

DRUGS (40)
  1. ACETAMINOPHEN [Suspect]
     Active Substance: ACETAMINOPHEN
     Indication: Migraine
     Dosage: UNK
     Route: 065
  2. AMITRIPTYLINE HYDROCHLORIDE [Suspect]
     Active Substance: AMITRIPTYLINE HYDROCHLORIDE
     Dosage: 1 DF, QD
     Route: 065
  3. AMITRIPTYLINE HYDROCHLORIDE [Suspect]
     Active Substance: AMITRIPTYLINE HYDROCHLORIDE
     Indication: Migraine
     Dosage: 10 MG, QD
     Route: 065
     Dates: start: 201110
  4. AMITRIPTYLINE HYDROCHLORIDE [Suspect]
     Active Substance: AMITRIPTYLINE HYDROCHLORIDE
     Dosage: 10 MG, QD
     Route: 065
     Dates: start: 201211
  5. ATROPA BELLADONNA\HOMEOPATHICS [Suspect]
     Active Substance: ATROPA BELLADONNA\HOMEOPATHICS
     Indication: Product used for unknown indication
     Dosage: UNK
     Route: 065
  6. BOTOX [Suspect]
     Active Substance: ONABOTULINUMTOXINA
     Indication: Migraine
     Dosage: 100 (IU INTERNATIONAL UNITS)
     Route: 065
     Dates: start: 201110, end: 201110
  7. BOTOX [Suspect]
     Active Substance: ONABOTULINUMTOXINA
     Dosage: 150 (IU INTERNATIONAL UNITS)
     Route: 065
     Dates: start: 20130307, end: 20130307
  8. BOTOX [Suspect]
     Active Substance: ONABOTULINUMTOXINA
     Dosage: UNK
     Route: 065
  9. BROMAZEPAM [Suspect]
     Active Substance: BROMAZEPAM
     Indication: Migraine
     Dosage: 3 MG, QD
     Route: 065
  10. BROMAZEPAM [Suspect]
     Active Substance: BROMAZEPAM
     Dosage: UNK
     Route: 065
  11. CAFFEINE [Suspect]
     Active Substance: CAFFEINE
     Indication: Migraine
     Dosage: UNK
     Route: 065
  12. VALPROATE SODIUM [Suspect]
     Active Substance: VALPROATE SODIUM
     Indication: Migraine
     Dosage: 500 MG, QD
     Route: 065
     Dates: start: 201211
  13. ERGOTAMINE [Suspect]
     Active Substance: CAFFEINE\ERGOTAMINE\ERGOTAMINE TARTRATE
     Indication: Migraine
     Dosage: UNK
     Route: 065
  14. FLUNARIZINE [Suspect]
     Active Substance: FLUNARIZINE
     Indication: Migraine
     Dosage: UNK
     Route: 065
  15. ACETAMINOPHEN\BELLADONNA LEAF\CAFFEINE\ERGOTAMINE TARTRATE [Suspect]
     Active Substance: ACETAMINOPHEN\BELLADONNA LEAF\CAFFEINE\ERGOTAMINE TARTRATE
     Indication: Migraine
     Dosage: UNK
     Route: 065
  16. IBUPROFEN [Suspect]
     Active Substance: IBUPROFEN
     Indication: Migraine
     Dosage: UNKNOWN
     Route: 065
  17. IBUPROFEN [Suspect]
     Active Substance: IBUPROFEN
     Dosage: UNKNOWN
     Route: 065
  18. LAMOTRIGINE [Suspect]
     Active Substance: LAMOTRIGINE
     Indication: Migraine
     Dosage: 50 MG, QD
     Route: 065
     Dates: start: 201110
  19. BROMAZEPAM [Suspect]
     Active Substance: BROMAZEPAM
     Indication: Migraine
     Dosage: 3 MG, QD
     Route: 065
  20. METAMIZOLE SODIUM [Suspect]
     Active Substance: METAMIZOLE SODIUM
     Indication: Migraine
     Dosage: UNK
     Route: 065
  21. MAXALT [Suspect]
     Active Substance: RIZATRIPTAN BENZOATE
     Indication: Migraine
     Dosage: 5 MG, QD
     Route: 065
  22. METAMIZOLE [Suspect]
     Active Substance: METAMIZOLE
     Indication: Migraine
     Dosage: UNK
     Route: 065
  23. METAMIZOLE MAGNESIUM [Suspect]
     Active Substance: METAMIZOLE MAGNESIUM
     Indication: Product used for unknown indication
     Dosage: UNK
     Route: 065
  24. PAROXETINE HYDROCHLORIDE [Suspect]
     Active Substance: PAROXETINE HYDROCHLORIDE\PAROXETINE HYDROCHLORIDE ANHYDROUS
     Indication: Migraine
     Dosage: UNK
     Route: 065
  25. PREDNISONE [Suspect]
     Active Substance: PREDNISONE
     Indication: Migraine
     Dosage: 60 MG, QD
     Route: 065
  26. RELPAX [Suspect]
     Active Substance: ELETRIPTAN HYDROBROMIDE
     Indication: Migraine
     Dosage: UNKNOWN
     Route: 065
  27. FLUNARIZINE HYDROCHLORIDE [Suspect]
     Active Substance: FLUNARIZINE HYDROCHLORIDE
     Indication: Migraine
     Dosage: 5 MG, QD
     Route: 065
  28. TOPAMAX [Suspect]
     Active Substance: TOPIRAMATE
     Dosage: 25 MG, QD
     Route: 065
     Dates: start: 200906
  29. TOPAMAX [Suspect]
     Active Substance: TOPIRAMATE
     Indication: Migraine
     Dosage: 50 MG
     Route: 065
  30. TOPIRAMATE [Suspect]
     Active Substance: TOPIRAMATE
     Dosage: 25 MG, QD
     Route: 065
     Dates: start: 200906, end: 200906
  31. TOPIRAMATE [Suspect]
     Active Substance: TOPIRAMATE
     Indication: Migraine
     Dosage: 50 MG
     Route: 065
  32. TOPIRAMATE [Suspect]
     Active Substance: TOPIRAMATE
     Dosage: UNK
     Route: 065
     Dates: start: 200906, end: 200906
  33. TOPIRAMATE [Suspect]
     Active Substance: TOPIRAMATE
     Dosage: UNK
     Route: 065
  34. TRYPTIZOL [Suspect]
     Active Substance: AMITRIPTYLINE HYDROCHLORIDE
     Indication: Migraine
     Dosage: 10 MG, QD
     Route: 065
     Dates: start: 201211
  35. TRYPTIZOL [Suspect]
     Active Substance: AMITRIPTYLINE HYDROCHLORIDE
     Dosage: 1 DF, QD
     Route: 065
  36. TRYPTIZOL [Suspect]
     Active Substance: AMITRIPTYLINE HYDROCHLORIDE
     Dosage: UNK
     Route: 065
  37. VALPROATE [Suspect]
     Active Substance: VALPROIC ACID
     Indication: Migraine
     Dosage: UNK
     Route: 065
  38. VOLTAREN [Suspect]
     Active Substance: DICLOFENAC SODIUM
     Indication: Migraine
     Dosage: UNKNOWN
     Route: 065
  39. XEOMIN [Suspect]
     Active Substance: INCOBOTULINUMTOXINA
     Indication: Migraine
     Dosage: 150 (IU INTERNATIONAL UNIT(S)
     Route: 065
     Dates: start: 20130307, end: 20130307
  40. ZOMIG [Suspect]
     Active Substance: ZOLMITRIPTAN
     Indication: Migraine
     Dosage: UNK
     Route: 065

REACTIONS (7)
  - Paraesthesia [Unknown]
  - Insomnia [Unknown]
  - Therapy partial responder [Unknown]
  - Drug abuse [Unknown]
  - Intentional product misuse [Unknown]
  - Product use in unapproved indication [Unknown]
  - Off label use [Unknown]

NARRATIVE: CASE EVENT DATE: 20090201
